FAERS Safety Report 16680832 (Version 2)
Quarter: 2019Q3

REPORT INFORMATION
  Report Type: Spontaneous
  Country: CN (occurrence: CN)
  Receive Date: 20190808
  Receipt Date: 20190905
  Transmission Date: 20191004
  Serious: Yes (Other)
  Sender: FDA-Public Use
  Company Number: CN-ASTRAZENECA-2019SF12466

PATIENT
  Sex: Female

DRUGS (2)
  1. IRESSA [Suspect]
     Active Substance: GEFITINIB
     Indication: NON-SMALL CELL LUNG CANCER
     Route: 048
  2. RADIOTHERAPY DRUGS [Concomitant]
     Indication: RADIOTHERAPY

REACTIONS (4)
  - Malignant neoplasm progression [Unknown]
  - Rash [Recovered/Resolved]
  - Drug resistance [Unknown]
  - Mental disorder [Unknown]
